FAERS Safety Report 7334206-9 (Version None)
Quarter: 2011Q1

REPORT INFORMATION
  Report Type: 
  Country: None (occurrence: None)
  Receive Date: 20110307
  Receipt Date: 20100205
  Transmission Date: 20110831
  Serious: No
  Sender: FDA-Public Use
  Company Number: US-BAYER-201013767NA

PATIENT
  Sex: Female
  Weight: 47.619 kg

DRUGS (1)
  1. MIRENA [Suspect]
     Dosage: 20 MCG/24HR, CONT
     Route: 015
     Dates: start: 20100204

REACTIONS (2)
  - COMPLICATION OF DEVICE INSERTION [None]
  - PAIN [None]
